FAERS Safety Report 5573765-3 (Version None)
Quarter: 2007Q4

REPORT INFORMATION
  Report Type: 
  Country: None (occurrence: None)
  Receive Date: 20071226
  Receipt Date: 20071216
  Transmission Date: 20080405
  Serious: Yes (Death, Hospitalization, Other)
  Sender: FDA-Public Use
  Company Number: DE-AMGEN-UK246544

PATIENT
  Sex: Male

DRUGS (14)
  1. PANITUMUMAB [Suspect]
     Indication: SQUAMOUS CELL CARCINOMA
     Route: 042
     Dates: start: 20070730, end: 20070928
  2. CISPLATIN [Suspect]
  3. FLUOROURACIL [Suspect]
  4. GELAFUNDIN [Concomitant]
     Route: 042
  5. DIFLUCAN [Concomitant]
     Route: 042
  6. VANCOMYCIN [Concomitant]
     Route: 042
  7. PRIMAXIN [Concomitant]
     Route: 042
  8. PANTOPRAZOLE SODIUM [Concomitant]
  9. METOCLOPRAMIDE HYDROCHLORIDE [Concomitant]
     Route: 042
  10. ZOFRAN [Concomitant]
     Route: 042
  11. IMODIUM [Concomitant]
  12. MORPHINE SULFATE [Concomitant]
     Route: 042
  13. NOVALGIN [Concomitant]
     Route: 042
  14. NEUPOGEN [Concomitant]

REACTIONS (15)
  - ANOREXIA [None]
  - CACHEXIA [None]
  - DEHYDRATION [None]
  - DIARRHOEA [None]
  - FEBRILE NEUTROPENIA [None]
  - HYPOKALAEMIA [None]
  - HYPOVOLAEMIA [None]
  - LEUKOPENIA [None]
  - METABOLIC ACIDOSIS [None]
  - PANCYTOPENIA [None]
  - PNEUMONIA [None]
  - RENAL FAILURE ACUTE [None]
  - SYSTEMIC INFLAMMATORY RESPONSE SYNDROME [None]
  - THROMBOCYTOPENIA [None]
  - VOMITING [None]
